FAERS Safety Report 18088273 (Version 2)
Quarter: 2020Q3

REPORT INFORMATION
  Report Type: Report from Study
  Country: IT (occurrence: IT)
  Receive Date: 20200729
  Receipt Date: 20200803
  Transmission Date: 20201103
  Serious: Yes (Other)
  Sender: FDA-Public Use
  Company Number: IT-MYLANLABS-2020M1068087

PATIENT
  Age: 67 Year
  Sex: Female

DRUGS (10)
  1. EFEXOR [Suspect]
     Active Substance: VENLAFAXINE HYDROCHLORIDE
     Dosage: 75 MILLIGRAM, QD
     Route: 048
  2. MIRTAZAPINE. [Suspect]
     Active Substance: MIRTAZAPINE
     Indication: DEPRESSION
     Dosage: 15 MILLIGRAM, QD
     Route: 048
     Dates: start: 20190524, end: 20190524
  3. EFEXOR [Suspect]
     Active Substance: VENLAFAXINE HYDROCHLORIDE
     Indication: DEPRESSION
     Dosage: 1.5 DOSAGE FORM, QD
     Route: 048
     Dates: start: 20190524, end: 20200524
  4. MINIAS [Suspect]
     Active Substance: LORMETAZEPAM
     Dosage: 30 GTT DROPS, QD
     Route: 048
     Dates: start: 20200521, end: 20200524
  5. EN [Concomitant]
     Active Substance: DELORAZEPAM
     Dosage: 20 GTT DROPS, QD
  6. LYRICA [Concomitant]
     Active Substance: PREGABALIN
     Dosage: 4 DOSAGE FORM, QD
  7. LYRICA [Concomitant]
     Active Substance: PREGABALIN
     Dosage: 150 MILLIGRAM, QD
  8. EUTIROX [Concomitant]
     Active Substance: LEVOTHYROXINE SODIUM
     Dosage: 1 DOSAGE FORM, QD
  9. MINIAS [Suspect]
     Active Substance: LORMETAZEPAM
     Indication: INSOMNIA
     Dosage: 40 GTT DROPS, QD
     Route: 048
  10. MINIAS [Suspect]
     Active Substance: LORMETAZEPAM
     Dosage: 35 GTT DROPS, QD
     Route: 048

REACTIONS (1)
  - Epilepsy [Recovered/Resolved]

NARRATIVE: CASE EVENT DATE: 20200524
